FAERS Safety Report 6985172-7 (Version None)
Quarter: 2010Q3

REPORT INFORMATION
  Report Type: 
  Country: None (occurrence: None)
  Receive Date: 20100915
  Receipt Date: 20100907
  Transmission Date: 20110219
  Serious: Yes (Other)
  Sender: FDA-Public Use
  Company Number: DE-AMGEN-QUU436290

PATIENT
  Sex: Male
  Weight: 103 kg

DRUGS (1)
  1. ARANESP [Suspect]
     Indication: DIALYSIS

REACTIONS (1)
  - HAEMOGLOBIN INCREASED [None]
